FAERS Safety Report 10891231 (Version 3)
Quarter: 2015Q3

REPORT INFORMATION
  Report Type: Report from Study
  Country: GB (occurrence: GB)
  Receive Date: 20150306
  Receipt Date: 20150729
  Transmission Date: 20151125
  Serious: Yes (Disabling)
  Sender: FDA-Public Use
  Company Number: GB-ROCHE-1548586

PATIENT
  Age: 82 Year
  Sex: Male

DRUGS (9)
  1. BISOPROLOL [Concomitant]
     Active Substance: BISOPROLOL
     Route: 065
     Dates: start: 2008
  2. RANIBIZUMAB [Suspect]
     Active Substance: RANIBIZUMAB
     Route: 050
     Dates: start: 20150203
  3. LISINOPRIL. [Concomitant]
     Active Substance: LISINOPRIL
     Route: 065
     Dates: start: 2008
  4. ZOLADEX [Concomitant]
     Active Substance: GOSERELIN ACETATE
     Route: 065
     Dates: start: 2008
  5. SIMVASTATIN. [Concomitant]
     Active Substance: SIMVASTATIN
     Route: 065
     Dates: start: 2009
  6. WARFARIN [Concomitant]
     Active Substance: WARFARIN
     Route: 065
     Dates: start: 2006
  7. RANIBIZUMAB [Suspect]
     Active Substance: RANIBIZUMAB
     Indication: AGE-RELATED MACULAR DEGENERATION
     Dosage: LAST DOSE PRIOR TO THE EVENT ON 03/FEB/2015
     Route: 050
     Dates: start: 20110815
  8. AMLODIPINE [Concomitant]
     Active Substance: AMLODIPINE BESYLATE
     Route: 065
     Dates: start: 2008
  9. RANIBIZUMAB [Suspect]
     Active Substance: RANIBIZUMAB
     Route: 050
     Dates: start: 20150106

REACTIONS (2)
  - Blindness [Recovered/Resolved]
  - Retinal artery occlusion [Recovered/Resolved]

NARRATIVE: CASE EVENT DATE: 20150209
